FAERS Safety Report 23337759 (Version 1)
Quarter: 2023Q4

REPORT INFORMATION
  Report Type: Other
  Country: AT (occurrence: None)
  Receive Date: 20231226
  Receipt Date: 20231226
  Transmission Date: 20240110
  Serious: No
  Sender: FDA-Public Use
  Company Number: AT-ROCHE-3480119

PATIENT
  Sex: Female
  Weight: 65 kg

DRUGS (1)
  1. OCREVUS [Suspect]
     Active Substance: OCRELIZUMAB
     Indication: Product used for unknown indication
     Route: 065
     Dates: start: 20230401

REACTIONS (2)
  - Maternal exposure timing unspecified [Unknown]
  - COVID-19 [Recovered/Resolved]
